FAERS Safety Report 5215327-3 (Version None)
Quarter: 2007Q1

REPORT INFORMATION
  Report Type: 
  Country: None (occurrence: None)
  Receive Date: 20070116
  Receipt Date: 20070109
  Transmission Date: 20070707
  Serious: Yes (Death)
  Sender: FDA-Public Use
  Company Number: 2007-00056

PATIENT
  Age: 62 Year
  Sex: Male

DRUGS (1)
  1. VELCADE [Suspect]
     Indication: MULTIPLE MYELOMA
     Dosage: 6.00 MG,
     Dates: start: 20060306, end: 20060306

REACTIONS (3)
  - OVERDOSE [None]
  - PNEUMONIA [None]
  - RESUSCITATION [None]
